FAERS Safety Report 9016400 (Version 1)
Quarter: 2013Q1

REPORT INFORMATION
  Report Type: Spontaneous
  Country: US (occurrence: US)
  Receive Date: 20130116
  Receipt Date: 20130116
  Transmission Date: 20140127
  Serious: Yes (Death, Hospitalization)
  Sender: FDA-Public Use
  Company Number: US-GLAXOSMITHKLINE-A0832914A

PATIENT
  Age: 83 Year
  Sex: Female
  Weight: 59.1 kg

DRUGS (1)
  1. AVANDIA [Suspect]
     Indication: DIABETES MELLITUS
     Route: 048
     Dates: start: 1999, end: 2002

REACTIONS (5)
  - Death [Fatal]
  - Myocardial infarction [Unknown]
  - Coronary artery disease [Unknown]
  - Angina unstable [Unknown]
  - Cardiac failure congestive [Unknown]
